FAERS Safety Report 9232150 (Version 2)
Quarter: 2013Q2

REPORT INFORMATION
  Report Type: Spontaneous
  Country: CN (occurrence: CN)
  Receive Date: 20130415
  Receipt Date: 20130418
  Transmission Date: 20140414
  Serious: Yes (Hospitalization)
  Sender: FDA-Public Use
  Company Number: CN-PFIZER INC-2013116741

PATIENT
  Sex: Female

DRUGS (1)
  1. CELEBREX [Suspect]
     Indication: CHEST PAIN
     Dosage: ONE CAPSULE
     Route: 048
     Dates: start: 20130321, end: 2013

REACTIONS (1)
  - Tubulointerstitial nephritis [Recovered/Resolved]
